FAERS Safety Report 7141366-1 (Version None)
Quarter: 2010Q4

REPORT INFORMATION
  Report Type: 
  Country: None (occurrence: None)
  Receive Date: 20101203
  Receipt Date: 20101203
  Transmission Date: 20110411
  Serious: Yes (Hospitalization)
  Sender: FDA-Public Use
  Company Number: None

PATIENT
  Sex: Female

DRUGS (14)
  1. ORAL CLOFARABINE, 1 MG, GENZYME CORP. [Suspect]
     Indication: MYELODYSPLASTIC SYNDROME
     Dosage: 1MG X7D, PO
     Route: 048
  2. CELEBREX [Concomitant]
  3. COUMADIN [Concomitant]
  4. FOSAMAX [Concomitant]
  5. LYRICA [Concomitant]
  6. PRILOSEC [Concomitant]
  7. PREDNISONE [Concomitant]
  8. SYNTHROID [Concomitant]
  9. ACETAMINOPHEN [Concomitant]
  10. CALCIUM W/ VITAMIN D [Concomitant]
  11. NORVASC [Concomitant]
  12. TRIMOVATE [Concomitant]
  13. KEFLEX [Concomitant]
  14. COMPAZINE [Concomitant]

REACTIONS (2)
  - FEMUR FRACTURE [None]
  - PANCYTOPENIA [None]
